FAERS Safety Report 5133799-X (Version None)
Quarter: 2006Q4

REPORT INFORMATION
  Report Type: 
  Country: None (occurrence: None)
  Receive Date: 20061018
  Receipt Date: 20061010
  Transmission Date: 20070319
  Serious: Yes (Death)
  Sender: FDA-Public Use
  Company Number: 2006BI007914

PATIENT
  Age: 88 Year
  Sex: Male

DRUGS (14)
  1. AVONEX [Suspect]
     Indication: MULTIPLE SCLEROSIS
     Dosage: SEE IMAGE
     Route: 030
     Dates: start: 20010101, end: 20010201
  2. AVONEX [Suspect]
     Indication: MULTIPLE SCLEROSIS
     Dosage: SEE IMAGE
     Route: 030
     Dates: start: 20010201, end: 20010301
  3. AVONEX [Suspect]
     Indication: MULTIPLE SCLEROSIS
     Dosage: SEE IMAGE
     Route: 030
     Dates: start: 20010301, end: 20010401
  4. AVONEX [Suspect]
     Indication: MULTIPLE SCLEROSIS
     Dosage: SEE IMAGE
     Route: 030
     Dates: start: 20010401, end: 20060301
  5. LISINOPRIL [Concomitant]
  6. LOPRESSOR [Concomitant]
  7. LASIX [Concomitant]
  8. TYLENOL [Concomitant]
  9. CELEXA [Concomitant]
  10. DARVOCET [Concomitant]
  11. DIGOXIN [Concomitant]
  12. ZANTAC [Concomitant]
  13. DITROPAN [Concomitant]
  14. COPAXONE [Concomitant]

REACTIONS (12)
  - ANAEMIA [None]
  - BENIGN PROSTATIC HYPERPLASIA [None]
  - CYSTOSTOMY [None]
  - DISEASE RECURRENCE [None]
  - ECZEMA [None]
  - FATIGUE [None]
  - HAEMATURIA [None]
  - INFECTION [None]
  - MULTIPLE SCLEROSIS [None]
  - NEUROGENIC BLADDER [None]
  - POST PROCEDURAL COMPLICATION [None]
  - REFUSAL OF TREATMENT BY PATIENT [None]
